FAERS Safety Report 6805121-1 (Version None)
Quarter: 2010Q2

REPORT INFORMATION
  Report Type: 
  Country: None (occurrence: None)
  Receive Date: 20100628
  Receipt Date: 20070920
  Transmission Date: 20101027
  Serious: Yes (Other)
  Sender: FDA-Public Use
  Company Number: US-PFIZER INC-2007070126

PATIENT
  Sex: Female
  Weight: 86 kg

DRUGS (6)
  1. GEODON [Suspect]
     Indication: ANXIETY
     Dates: start: 20061001, end: 20070814
  2. GEODON [Suspect]
     Indication: PANIC ATTACK
  3. GEODON [Suspect]
     Indication: DEPRESSION
  4. XANAX [Concomitant]
  5. XANAX [Concomitant]
  6. PAXIL [Concomitant]

REACTIONS (1)
  - PARKINSONISM [None]
